FAERS Safety Report 20767375 (Version 1)
Quarter: 2022Q2

REPORT INFORMATION
  Report Type: Report from Study
  Country: DE (occurrence: DE)
  Receive Date: 20220429
  Receipt Date: 20220429
  Transmission Date: 20220721
  Serious: Yes (Other)
  Sender: FDA-Public Use
  Company Number: DE-BRISTOL-MYERS SQUIBB COMPANY-BMS-2022-034954

PATIENT
  Age: 60 Year
  Sex: Male

DRUGS (1)
  1. NIVOLUMAB [Suspect]
     Active Substance: NIVOLUMAB
     Indication: Squamous cell carcinoma of head and neck
     Dosage: 240 MILLIGRAM, Q2WK
     Route: 042
     Dates: start: 20201016, end: 20210105

REACTIONS (3)
  - Malignant neoplasm progression [Not Recovered/Not Resolved]
  - Pruritus [Recovered/Resolved with Sequelae]
  - Septic shock [Unknown]

NARRATIVE: CASE EVENT DATE: 20201117
